FAERS Safety Report 9185797 (Version 1)
Quarter: 2013Q1

REPORT INFORMATION
  Report Type: Spontaneous
  Country: None (occurrence: None)
  Receive Date: 20130321
  Receipt Date: 20130321
  Transmission Date: 20140127
  Serious: Yes (Hospitalization, Other)
  Sender: FDA-Public Use
  Company Number: DAV-AE-FUR-13-04

PATIENT
  Age: 51 Year
  Sex: Female
  Weight: 55 kg

DRUGS (12)
  1. FUROSEMIDE [Suspect]
     Indication: NON-HODGKIN^S LYMPHOMA
  2. FUROSEMIDE [Suspect]
     Indication: NEOPLASM RECURRENCE
  3. ENTECAVIR [Concomitant]
  4. PROPRANOLOL [Concomitant]
  5. SPIRONOLACTONE [Concomitant]
  6. ALLOPURINOL [Concomitant]
  7. LACTULOSE [Concomitant]
  8. ETOPOSIDE [Concomitant]
  9. METHYLPREDNISOLONE [Concomitant]
  10. CYTARABINE [Concomitant]
  11. CISPLATIN [Concomitant]
  12. FILGRASTIM [Concomitant]

REACTIONS (5)
  - Hypophosphataemia [None]
  - Body temperature increased [None]
  - Neutropenia [None]
  - Leukopenia [None]
  - Blood potassium decreased [None]
